FAERS Safety Report 16365630 (Version 1)
Quarter: 2019Q2

REPORT INFORMATION
  Report Type: Spontaneous
  Country: DE (occurrence: DE)
  Receive Date: 20190529
  Receipt Date: 20190529
  Transmission Date: 20190711
  Serious: Yes (Hospitalization)
  Sender: FDA-Public Use
  Company Number: DE-AUROBINDO-AUR-APL-2019-029456

PATIENT

DRUGS (8)
  1. CANNABIDIOL [Interacting]
     Active Substance: CANNABIDIOL
     Indication: EPILEPSY
     Dosage: 750 MILLIGRAM (10 MG/KG, 750 MILLIGRAM, QD (500MG AM; 250MG PM))
     Route: 048
     Dates: start: 20190207, end: 20190404
  2. PHENYTOIN. [Suspect]
     Active Substance: PHENYTOIN
     Indication: EPILEPSY
     Dosage: 200 MILLIGRAM, ONCE A DAY (200 MILLIGRAM, QD (100 MG BID))
     Route: 065
     Dates: start: 20190308
  3. CLOBAZAM. [Interacting]
     Active Substance: CLOBAZAM
     Dosage: UNK
     Route: 065
     Dates: start: 20190308
  4. CANNABIDIOL [Interacting]
     Active Substance: CANNABIDIOL
     Dosage: 1000 MILLIGRAM (13.3MG/KG, 1000 MILLIGRAM, QD)
     Route: 048
     Dates: start: 20190405
  5. CLOBAZAM. [Interacting]
     Active Substance: CLOBAZAM
     Indication: EPILEPSY
     Dosage: 30 MILLIGRAM, ONCE A DAY (QD (10 MG TID))
     Route: 065
     Dates: start: 20190308
  6. PHENYTOIN. [Interacting]
     Active Substance: PHENYTOIN
     Dosage: UNK
     Route: 065
     Dates: start: 20190308
  7. LAMOTRIGINE. [Concomitant]
     Active Substance: LAMOTRIGINE
     Indication: EPILEPSY
     Dosage: 600 MILLIGRAM, ONCE A DAY (QD (200 MG TID))
     Route: 065
  8. TOPIRAMAT [Concomitant]
     Active Substance: TOPIRAMATE
     Indication: EPILEPSY
     Dosage: 450 MILLIGRAM, ONCE A DAY (QD (150 MG TID))
     Route: 065

REACTIONS (3)
  - Drug interaction [Unknown]
  - Somnolence [Recovered/Resolved]
  - Fall [Recovered/Resolved]

NARRATIVE: CASE EVENT DATE: 20190301
